FAERS Safety Report 10188432 (Version 1)
Quarter: 2014Q2

REPORT INFORMATION
  Report Type: Spontaneous
  Country: US (occurrence: None)
  Receive Date: 20140521
  Receipt Date: 20140521
  Transmission Date: 20141212
  Serious: Yes (Hospitalization)
  Sender: FDA-Public Use
  Company Number: None

PATIENT
  Age: 51 Year
  Sex: Female
  Weight: 86.18 kg

DRUGS (1)
  1. HYDROMET (HYDROMET) 1.5 SYRUP [Suspect]
     Indication: COUGH
     Dosage: YES, TSP EA 6HR AS NEED, TAKEN BY MOUTH
     Route: 048
     Dates: start: 20140507, end: 20140507

REACTIONS (6)
  - Nausea [None]
  - Vomiting [None]
  - Dizziness [None]
  - Tremor [None]
  - Fatigue [None]
  - Hypertension [None]
